FAERS Safety Report 18132491 (Version 1)
Quarter: 2020Q3

REPORT INFORMATION
  Report Type: Other
  Country: DE (occurrence: DE)
  Receive Date: 20200811
  Receipt Date: 20200811
  Transmission Date: 20201103
  Serious: Yes (Other)
  Sender: FDA-Public Use
  Company Number: DE-LUPIN PHARMACEUTICALS INC.-2020-04313

PATIENT
  Age: 1 Day
  Sex: Female
  Weight: 2.03 kg

DRUGS (4)
  1. DULOXETINE. [Concomitant]
     Active Substance: DULOXETINE
     Indication: DEPRESSION
     Dosage: 90 MILLIGRAM, QD (90 MG/D)
     Route: 064
  2. ATOSIL [PROMETHAZINE HYDROCHLORIDE] [Concomitant]
     Active Substance: PROMETHAZINE HYDROCHLORIDE
     Indication: RESTLESSNESS
     Dosage: 30 MILLIGRAM, BID (30 MG/D BIS 20 DURING THE HOSPITAL STAY EVERY DAY, THEN IF REQUIRED)
     Route: 064
     Dates: start: 20190613, end: 20191219
  3. INFLUVAC TETRA [Concomitant]
     Active Substance: INFLUENZA VIRUS VACCINE QUADRIVALENT TYPE A+B
     Indication: INFLUENZA IMMUNISATION
     Dosage: UNK (INFLUVAC TETRA SAISON 19/20)
     Route: 064
     Dates: start: 20191210, end: 20191210
  4. SERTRALINE [Suspect]
     Active Substance: SERTRALINE HYDROCHLORIDE
     Indication: DEPRESSION
     Dosage: 200 MILLIGRAM, BID (200 MG/D BIS 50)
     Route: 064
     Dates: start: 20190613, end: 20191230

REACTIONS (4)
  - Small for dates baby [Unknown]
  - Hypoglycaemia neonatal [Recovered/Resolved]
  - Agitation neonatal [Recovered/Resolved]
  - Foetal exposure during pregnancy [Unknown]

NARRATIVE: CASE EVENT DATE: 20191230
